FAERS Safety Report 16097083 (Version 1)
Quarter: 2019Q1

REPORT INFORMATION
  Report Type: Report from Study
  Country: DE (occurrence: DE)
  Receive Date: 20190320
  Receipt Date: 20190320
  Transmission Date: 20190418
  Serious: Yes (Other)
  Sender: FDA-Public Use
  Company Number: DE-TEVA-2019-DE-1026295

PATIENT
  Age: 2 Year
  Sex: Male

DRUGS (4)
  1. VINCRISTINE [Suspect]
     Active Substance: VINCRISTINE
     Indication: BRAIN NEOPLASM
     Route: 065
  2. ADRIAMYCIN [Suspect]
     Active Substance: DOXORUBICIN HYDROCHLORIDE
     Indication: BRAIN NEOPLASM
     Route: 065
  3. ACTINOMYCINE D [Suspect]
     Active Substance: DACTINOMYCIN
     Indication: BRAIN NEOPLASM
     Route: 065
  4. IFOSFAMIDE. [Suspect]
     Active Substance: IFOSFAMIDE
     Indication: BRAIN NEOPLASM
     Route: 065

REACTIONS (2)
  - Gastroenteritis sapovirus [Not Recovered/Not Resolved]
  - Diarrhoea [Recovered/Resolved]
